FAERS Safety Report 5345466-8 (Version None)
Quarter: 2007Q2

REPORT INFORMATION
  Report Type: 
  Country: None (occurrence: None)
  Receive Date: 20070605
  Receipt Date: 20070524
  Transmission Date: 20071010
  Serious: Yes (Hospitalization)
  Sender: FDA-Public Use
  Company Number: FR-ELI_LILLY_AND_COMPANY-FR200704004059

PATIENT
  Age: 76 Year
  Sex: Female
  Weight: 56 kg

DRUGS (4)
  1. LIPANTHYL [Concomitant]
     Indication: HYPERCHOLESTEROLAEMIA
     Dosage: 200 MG, UNK
     Dates: start: 20030101
  2. CALCIUM CHLORIDE [Concomitant]
     Indication: OSTEOPOROSIS
     Dates: start: 20010101
  3. VITAMIN D [Concomitant]
     Indication: OSTEOPOROSIS
     Dates: start: 20010101
  4. FORTEO [Suspect]
     Indication: OSTEOPOROSIS
     Dosage: 20 UG, DAILY (1/D)
     Route: 058
     Dates: start: 20061004

REACTIONS (3)
  - DEPRESSION [None]
  - FALL [None]
  - FEMUR FRACTURE [None]
